FAERS Safety Report 7707070-3 (Version None)
Quarter: 2011Q3

REPORT INFORMATION
  Report Type: 
  Country: None (occurrence: None)
  Receive Date: 20110824
  Receipt Date: 20110818
  Transmission Date: 20111222
  Serious: No
  Sender: FDA-Public Use
  Company Number: US-PFIZER INC-2007036768

PATIENT
  Sex: Female

DRUGS (3)
  1. NEURONTIN [Suspect]
     Indication: INSOMNIA
  2. NEURONTIN [Suspect]
     Indication: MOOD SWINGS
  3. NEURONTIN [Suspect]
     Indication: BIPOLAR DISORDER
     Dosage: UNK
     Dates: start: 19950101

REACTIONS (4)
  - PARAESTHESIA [None]
  - DEPRESSION [None]
  - AGITATION [None]
  - AMNESIA [None]
